FAERS Safety Report 7679425-7 (Version None)
Quarter: 2011Q3

REPORT INFORMATION
  Report Type: 
  Country: None (occurrence: None)
  Receive Date: 20110812
  Receipt Date: 20110801
  Transmission Date: 20111222
  Serious: Yes (Hospitalization, Other)
  Sender: FDA-Public Use
  Company Number: US-JNJFOC-20080800793

PATIENT
  Sex: Female
  Weight: 43.4 kg

DRUGS (6)
  1. MERCAPTOPURINE [Concomitant]
  2. AZATHIOPRINE [Concomitant]
  3. REMICADE [Suspect]
     Dosage: TOTAL 4 DOSES
     Route: 042
     Dates: start: 20071227
  4. MESALAMINE [Concomitant]
  5. REMICADE [Suspect]
     Indication: INFLAMMATORY BOWEL DISEASE
     Route: 042
     Dates: start: 20070921
  6. MERCAPTOPURINE [Concomitant]
     Dates: start: 20080101

REACTIONS (1)
  - INTESTINAL STENOSIS [None]
